FAERS Safety Report 11121300 (Version 1)
Quarter: 2015Q2

REPORT INFORMATION
  Report Type: Spontaneous
  Country: US (occurrence: None)
  Receive Date: 20150518
  Receipt Date: 20150518
  Transmission Date: 20150821
  Serious: No
  Sender: FDA-Public Use
  Company Number: None

PATIENT
  Age: 18 Year
  Sex: Female
  Weight: 71.67 kg

DRUGS (4)
  1. ROCEPHIN [Concomitant]
     Active Substance: CEFTRIAXONE SODIUM
  2. KCL [Concomitant]
     Active Substance: POTASSIUM CHLORIDE
  3. MAGNESIUM SULFATE. [Concomitant]
     Active Substance: MAGNESIUM SULFATE
  4. VANCOMYCIN [Suspect]
     Active Substance: VANCOMYCIN
     Dosage: 1000 MG/250ML NS IVPB
     Dates: start: 20150314, end: 20150314

REACTIONS (1)
  - Pruritus [None]

NARRATIVE: CASE EVENT DATE: 20150315
